FAERS Safety Report 10219549 (Version 3)
Quarter: 2015Q1

REPORT INFORMATION
  Report Type: Report from Study
  Country: CA (occurrence: CA)
  Receive Date: 20140605
  Receipt Date: 20150123
  Transmission Date: 20150720
  Serious: Yes (Hospitalization, Other)
  Sender: FDA-Public Use
  Company Number: CA-BRISTOL-MYERS SQUIBB COMPANY-20869434

PATIENT
  Sex: Female

DRUGS (7)
  1. OLANZAPINE. [Concomitant]
     Active Substance: OLANZAPINE
  2. ZOPICLONE [Concomitant]
     Active Substance: ZOPICLONE
  3. TRACLEER [Interacting]
     Active Substance: BOSENTAN\BOSENTAN MONOHYDRATE
  4. ABATACEPT [Suspect]
     Active Substance: ABATACEPT
     Indication: RHEUMATOID ARTHRITIS
     Dosage: LAST DOSE : 29APR2014
     Route: 042
     Dates: start: 20130128
  5. OXYCODONE [Concomitant]
     Active Substance: OXYCODONE
  6. PREDNISONE. [Suspect]
     Active Substance: PREDNISONE
     Indication: PRODUCT USED FOR UNKNOWN INDICATION
     Route: 065
  7. CIALIS [Concomitant]
     Active Substance: TADALAFIL

REACTIONS (3)
  - Bipolar disorder [Unknown]
  - Substance-induced psychotic disorder [Unknown]
  - Granulomatosis with polyangiitis [Unknown]

NARRATIVE: CASE EVENT DATE: 1990
